FAERS Safety Report 14217960 (Version 2)
Quarter: 2017Q4

REPORT INFORMATION
  Report Type: Spontaneous
  Country: DE (occurrence: DE)
  Receive Date: 20171123
  Receipt Date: 20171228
  Transmission Date: 20180321
  Serious: Yes (Other)
  Sender: FDA-Public Use
  Company Number: DE-DRREDDYS-GER/GER/17/0094670

PATIENT
  Sex: Male

DRUGS (7)
  1. HCT 25 - 1 A PHARMA [Suspect]
     Active Substance: HYDROCHLOROTHIAZIDE
     Indication: PRODUCT USED FOR UNKNOWN INDICATION
  2. CARVEDILOL 25 [Suspect]
     Active Substance: CARVEDILOL
     Indication: PRODUCT USED FOR UNKNOWN INDICATION
  3. RAMIPRIL 10 MG (RAMIPRIL) UNKNOWN, 10 MG [Suspect]
     Active Substance: RAMIPRIL
     Indication: PRODUCT USED FOR UNKNOWN INDICATION
  4. ASS 100 [Suspect]
     Active Substance: ASPIRIN
     Indication: PRODUCT USED FOR UNKNOWN INDICATION
  5. ATORVASTATIN 40 [Suspect]
     Active Substance: ATORVASTATIN
     Indication: PRODUCT USED FOR UNKNOWN INDICATION
  6. LERCANIDIPIN-OMNIAPHARM 10 MG FILM COATED TABLET [Suspect]
     Active Substance: LERCANIDIPINE
     Indication: PRODUCT USED FOR UNKNOWN INDICATION
  7. PANTOPRAZOLE 20 [Suspect]
     Active Substance: PANTOPRAZOLE SODIUM
     Indication: PRODUCT USED FOR UNKNOWN INDICATION

REACTIONS (4)
  - Depressed mood [Unknown]
  - Apathy [Unknown]
  - General physical health deterioration [Unknown]
  - Fatigue [Unknown]

NARRATIVE: CASE EVENT DATE: 201702
